FAERS Safety Report 24564407 (Version 1)
Quarter: 2024Q4

REPORT INFORMATION
  Report Type: Spontaneous
  Country: US (occurrence: US)
  Receive Date: 20241030
  Receipt Date: 20241030
  Transmission Date: 20250115
  Serious: Yes (Other)
  Sender: ELITE
  Company Number: US-ELITEPHARMA-2024ELLIT00242

PATIENT
  Age: 28 Year
  Sex: Female

DRUGS (1)
  1. PHENTERMINE [Suspect]
     Active Substance: PHENTERMINE\PHENTERMINE HYDROCHLORIDE
     Indication: Weight decreased
     Route: 065

REACTIONS (1)
  - Arteriospasm coronary [Recovered/Resolved]
